FAERS Safety Report 11844915 (Version 1)
Quarter: 2015Q4

REPORT INFORMATION
  Report Type: Spontaneous
  Country: US (occurrence: None)
  Receive Date: 20151216
  Receipt Date: 20151216
  Transmission Date: 20160305
  Serious: Yes (Other)
  Sender: FDA-Public Use
  Company Number: None

PATIENT
  Age: 47 Year
  Sex: Male

DRUGS (9)
  1. MITOMYCIN 0.02% SURGERY PHARMACY SERVICES [Suspect]
     Active Substance: MITOMYCIN
     Indication: CORNEAL OPACITY
     Dosage: 11 SECOND APPLICATION
     Route: 061
     Dates: start: 20150805
  2. ILEVRO [Concomitant]
     Active Substance: NEPAFENAC
  3. TOBRADEX [Concomitant]
     Active Substance: DEXAMETHASONE\TOBRAMYCIN
  4. BESIVANCE [Concomitant]
     Active Substance: BESIFLOXACIN
  5. MITOMYCIN 0.02% SURGERY PHARMACY SERVICES [Suspect]
     Active Substance: MITOMYCIN
     Indication: PROPHYLAXIS
     Dosage: 11 SECOND APPLICATION
     Route: 061
     Dates: start: 20150805
  6. LOTEMAX [Concomitant]
     Active Substance: LOTEPREDNOL ETABONATE
  7. DUREZOL [Concomitant]
     Active Substance: DIFLUPREDNATE
  8. PUREZOL [Concomitant]
  9. PUNCTAL PLUGS [Concomitant]
     Active Substance: DEVICE

REACTIONS (7)
  - Corneal disorder [None]
  - Dry eye [None]
  - Corneal oedema [None]
  - Post procedural complication [None]
  - Photophobia [None]
  - Inflammation [None]
  - Condition aggravated [None]

NARRATIVE: CASE EVENT DATE: 20150805
